FAERS Safety Report 10292539 (Version 1)
Quarter: 2014Q3

REPORT INFORMATION
  Report Type: Spontaneous
  Country: US (occurrence: US)
  Receive Date: 20140710
  Receipt Date: 20140710
  Transmission Date: 20150326
  Serious: No
  Sender: FDA-Public Use
  Company Number: US-TEVA-492315USA

PATIENT
  Sex: Female
  Weight: 170 kg

DRUGS (7)
  1. REMERON [Concomitant]
     Active Substance: MIRTAZAPINE
     Indication: SLEEP DISORDER
  2. THYROID [Concomitant]
     Active Substance: LEVOTHYROXINE\LIOTHYRONINE
  3. NUVIGIL [Suspect]
     Active Substance: ARMODAFINIL
     Indication: DEPRESSION
  4. LEXAPRO [Concomitant]
     Active Substance: ESCITALOPRAM OXALATE
  5. NUVIGIL [Suspect]
     Active Substance: ARMODAFINIL
     Indication: ASTHENIA
  6. INSULIN [Concomitant]
     Active Substance: INSULIN NOS
     Indication: DIABETES MELLITUS
  7. XANAX [Concomitant]
     Active Substance: ALPRAZOLAM
     Indication: ANXIETY

REACTIONS (5)
  - Off label use [Unknown]
  - Nervousness [Unknown]
  - Burning sensation [Unknown]
  - Feeling jittery [Unknown]
  - Drug administration error [Unknown]
